FAERS Safety Report 11428259 (Version 1)
Quarter: 2015Q3

REPORT INFORMATION
  Report Type: Spontaneous
  Country: US (occurrence: US)
  Receive Date: 20150828
  Receipt Date: 20150828
  Transmission Date: 20151125
  Serious: No
  Sender: FDA-Public Use
  Company Number: US-ROCHE-1248482

PATIENT
  Sex: Female

DRUGS (4)
  1. INCIVEK [Suspect]
     Active Substance: TELAPREVIR
     Indication: CHRONIC HEPATITIS C
     Route: 048
     Dates: start: 20130701
  2. PEGASYS [Suspect]
     Active Substance: PEGINTERFERON ALFA-2A
     Indication: CHRONIC HEPATITIS C
     Dosage: PROCLICK AUTOINJECTOR
     Route: 058
     Dates: start: 20130701
  3. COPEGUS [Suspect]
     Active Substance: RIBAVIRIN
     Indication: CHRONIC HEPATITIS C
     Dosage: DAILY, DIVIDED DOSES ORALLY
     Route: 048
     Dates: start: 20130701
  4. COPEGUS [Suspect]
     Active Substance: RIBAVIRIN
     Dosage: DAILY, DIVIDED DOSES ORALLY
     Route: 048

REACTIONS (10)
  - Injection site bruising [Unknown]
  - Nasopharyngitis [Unknown]
  - Dry skin [Unknown]
  - Insomnia [Unknown]
  - Injection site haemorrhage [Recovering/Resolving]
  - Contusion [Unknown]
  - Faeces discoloured [Unknown]
  - Pruritus [Recovering/Resolving]
  - Pruritus generalised [Unknown]
  - Anaemia [Unknown]
